FAERS Safety Report 4958393-2 (Version None)
Quarter: 2006Q1

REPORT INFORMATION
  Report Type: 
  Country: None (occurrence: None)
  Receive Date: 20060329
  Receipt Date: 20060329
  Transmission Date: 20060701
  Serious: Yes (Hospitalization)
  Sender: FDA-Public Use
  Company Number: None

PATIENT
  Age: 62 Year
  Sex: Female

DRUGS (2)
  1. LENALIDOMIDE   25 MG,    5 MG        CELGENE [Suspect]
     Indication: GLIOBLASTOMA
     Dosage: 40 MG  DAILY  PO
     Route: 048
     Dates: start: 20051223, end: 20060112
  2. LENALIDOMIDE [Suspect]

REACTIONS (1)
  - PULMONARY EMBOLISM [None]
